FAERS Safety Report 21667721 (Version 1)
Quarter: 2022Q4

REPORT INFORMATION
  Report Type: Spontaneous
  Country: US (occurrence: US)
  Receive Date: 20221201
  Receipt Date: 20221201
  Transmission Date: 20230113
  Serious: Yes (Hospitalization, Other)
  Sender: FDA-Public Use
  Company Number: US-Melinta Therapeutics, LLC-US-MLNT-22-00254

PATIENT
  Age: 83 Year
  Sex: Male

DRUGS (2)
  1. KIMYRSA [Suspect]
     Active Substance: ORITAVANCIN DIPHOSPHATE
     Indication: Product used for unknown indication
     Route: 041
     Dates: start: 20220608, end: 20220608
  2. KIMYRSA [Suspect]
     Active Substance: ORITAVANCIN DIPHOSPHATE
     Route: 041
     Dates: start: 20220622, end: 20220622

REACTIONS (5)
  - Coronary artery occlusion [Recovered/Resolved]
  - Feeling cold [Recovered/Resolved]
  - Tremor [Recovered/Resolved]
  - Chest pain [Recovered/Resolved]
  - Multiple use of single-use product [Recovered/Resolved]

NARRATIVE: CASE EVENT DATE: 20220622
